FAERS Safety Report 5409351-5 (Version None)
Quarter: 2007Q3

REPORT INFORMATION
  Report Type: 
  Country: None (occurrence: None)
  Receive Date: 20070809
  Receipt Date: 20070801
  Transmission Date: 20080115
  Serious: Yes (Other)
  Sender: FDA-Public Use
  Company Number: US-BAYER-200712223BCC

PATIENT
  Sex: Male

DRUGS (1)
  1. RID MOUSSE [Suspect]
     Indication: PROPHYLAXIS
     Route: 061
     Dates: start: 20070710

REACTIONS (2)
  - CAUSTIC INJURY [None]
  - ULCERATIVE KERATITIS [None]
